FAERS Safety Report 4693375-X (Version None)
Quarter: 2005Q2

REPORT INFORMATION
  Report Type: 
  Country: None (occurrence: None)
  Receive Date: 20050617
  Receipt Date: 20050428
  Transmission Date: 20051028
  Serious: Yes (Hospitalization, Other)
  Sender: FDA-Public Use
  Company Number: US-MERCK-0504USA05195

PATIENT
  Age: 45 Year
  Sex: Male
  Weight: 111 kg

DRUGS (5)
  1. VIOXX [Suspect]
     Indication: ARTHRITIS
     Route: 048
     Dates: start: 20010101
  2. VIOXX [Suspect]
     Route: 048
     Dates: end: 20040101
  3. ASPIRIN [Concomitant]
     Indication: PROPHYLAXIS
     Route: 065
     Dates: start: 20020101
  4. GLUCOSAMINE HYDROCHLORIDE AND CHONDROITIN SULFATE SODIUM [Concomitant]
     Route: 065
  5. ALLEGRA [Concomitant]
     Route: 065

REACTIONS (22)
  - ABDOMINAL PAIN [None]
  - ARTHRALGIA [None]
  - BEREAVEMENT REACTION [None]
  - CHEST PAIN [None]
  - COUGH [None]
  - DIZZINESS [None]
  - DYSPEPSIA [None]
  - FATIGUE [None]
  - HAEMATOCHEZIA [None]
  - HAEMORRHOIDS [None]
  - HEPATIC STEATOSIS [None]
  - HIGH DENSITY LIPOPROTEIN DECREASED [None]
  - HYPERTENSIVE HEART DISEASE [None]
  - LIVER DISORDER [None]
  - OEDEMA PERIPHERAL [None]
  - OSTEOARTHRITIS [None]
  - PULMONARY HYPERTENSION [None]
  - RECTAL HAEMORRHAGE [None]
  - SILENT MYOCARDIAL INFARCTION [None]
  - SLEEP APNOEA SYNDROME [None]
  - SNORING [None]
  - WEIGHT INCREASED [None]
